FAERS Safety Report 17574512 (Version 2)
Quarter: 2020Q2

REPORT INFORMATION
  Report Type: Spontaneous
  Country: BR (occurrence: BR)
  Receive Date: 20200324
  Receipt Date: 20200403
  Transmission Date: 20200713
  Serious: Yes (Other)
  Sender: FDA-Public Use
  Company Number: BR-BAXTER-2020BAX006124

PATIENT
  Age: 79 Year
  Sex: Female
  Weight: 49.5 kg

DRUGS (9)
  1. GENUXAL [Suspect]
     Active Substance: CYCLOPHOSPHAMIDE
     Indication: INVASIVE DUCTAL BREAST CARCINOMA
     Dosage: AC PROTOCOL; FIRST CYCLE; DILUTED WITH 250 ML 0.9% SALINE SOLUTION; INFUSION TIME OF 30 MIN
     Route: 042
     Dates: start: 20200212
  2. DEXTROSE. [Suspect]
     Active Substance: DEXTROSE
     Indication: MEDICATION DILUTION
     Dosage: AC PROTOCOL; FIRST CYCLE; DILUTED WITH 87.6 MG FAULDOXO; INFUSION TIME OF 15 MIN
     Route: 042
     Dates: start: 20200212
  3. FAULDOXO [Suspect]
     Active Substance: DOXORUBICIN HYDROCHLORIDE
     Indication: INVASIVE DUCTAL BREAST CARCINOMA
     Dosage: AC PROTOCOL; FIRST CYCLE; DILUTED WITH 50 ML 5% DEXTROSE; INFUSION TIME OF 15 MIN
     Route: 042
     Dates: start: 20200212
  4. PALONOSETRON. [Concomitant]
     Active Substance: PALONOSETRON HYDROCHLORIDE
     Indication: PREMEDICATION
     Route: 065
  5. LOSARTAN + HYDROCHLOROTHIAZIDE [Concomitant]
     Active Substance: HYDROCHLOROTHIAZIDE\LOSARTAN
     Indication: PRODUCT USED FOR UNKNOWN INDICATION
     Route: 065
  6. SODIUM CHLORIDE. [Suspect]
     Active Substance: SODIUM CHLORIDE
     Indication: MEDICATION DILUTION
     Dosage: AC PROTOCOL; FIRST CYCLE; DILUTED WITH 876 MG GENUXAL; INFUSION TIME OF 30 MIN
     Route: 042
     Dates: start: 20200212
  7. FOSAPREPITANT [Concomitant]
     Active Substance: FOSAPREPITANT
     Indication: PREMEDICATION
     Route: 065
  8. DEXAMETHASONE. [Concomitant]
     Active Substance: DEXAMETHASONE
     Indication: PREMEDICATION
     Route: 065
  9. PROPANOLOL [Concomitant]
     Active Substance: PROPRANOLOL HYDROCHLORIDE
     Indication: PRODUCT USED FOR UNKNOWN INDICATION
     Route: 065

REACTIONS (1)
  - Thrombocytopenia [Recovered/Resolved]

NARRATIVE: CASE EVENT DATE: 20200221
